FAERS Safety Report 25610398 (Version 1)
Quarter: 2025Q3

REPORT INFORMATION
  Report Type: Spontaneous
  Country: GB (occurrence: GB)
  Receive Date: 20250728
  Receipt Date: 20250728
  Transmission Date: 20251021
  Serious: Yes (Other)
  Sender: BIOGEN
  Company Number: GB-BIOGEN-2025BI01318154

PATIENT
  Age: 64 Year
  Sex: Female

DRUGS (1)
  1. VUMERITY [Suspect]
     Active Substance: DIROXIMEL FUMARATE
     Indication: Multiple sclerosis
     Route: 050
     Dates: start: 202310, end: 202506

REACTIONS (5)
  - Full blood count decreased [Unknown]
  - Oropharyngeal pain [Unknown]
  - Lower respiratory tract infection [Unknown]
  - Oral candidiasis [Unknown]
  - Prescribed underdose [Recovered/Resolved]

NARRATIVE: CASE EVENT DATE: 20231001
